FAERS Safety Report 17637351 (Version 1)
Quarter: 2020Q2

REPORT INFORMATION
  Report Type: Spontaneous
  Country: US (occurrence: US)
  Receive Date: 20200407
  Receipt Date: 20200407
  Transmission Date: 20200713
  Serious: No
  Sender: FDA-Public Use
  Company Number: US-BAYER-2020-055829

PATIENT
  Sex: Male

DRUGS (9)
  1. FINASTERIDE. [Concomitant]
     Active Substance: FINASTERIDE
  2. VITAMIN B12 [Concomitant]
     Active Substance: CYANOCOBALAMIN
  3. ATENOLOL. [Concomitant]
     Active Substance: ATENOLOL
  4. PROTONIX [OMEPRAZOLE] [Concomitant]
     Active Substance: OMEPRAZOLE
  5. CLARINEX [Concomitant]
     Active Substance: DESLORATADINE
  6. DICYCLOMINE [DICYCLOVERINE HYDROCHLORIDE] [Concomitant]
  7. XARELTO [Concomitant]
     Active Substance: RIVAROXABAN
  8. SPIRONOLACTONE. [Concomitant]
     Active Substance: SPIRONOLACTONE
  9. MIRALAX [Suspect]
     Active Substance: POLYETHYLENE GLYCOL 3350
     Indication: GASTROINTESTINAL DISORDER
     Dosage: 1 DF FULL DOSE
     Route: 048
     Dates: start: 20200403

REACTIONS (1)
  - Expired product administered [Unknown]
